FAERS Safety Report 5483936-2 (Version None)
Quarter: 2007Q4

REPORT INFORMATION
  Report Type: 
  Country: None (occurrence: None)
  Receive Date: 20071012
  Receipt Date: 20071008
  Transmission Date: 20080405
  Serious: Yes (Death)
  Sender: FDA-Public Use
  Company Number: IE-AVENTIS-200713797EU

PATIENT
  Age: 61 Year
  Sex: Male

DRUGS (17)
  1. ENOXAPARIN SODIUM [Suspect]
     Indication: PROPHYLAXIS
     Dates: end: 20070620
  2. TARGOCID [Suspect]
  3. ZOTON [Suspect]
     Indication: PROPHYLAXIS AGAINST GASTROINTESTINAL ULCER
     Route: 048
     Dates: start: 20070528, end: 20070709
  4. VANCOMYCIN HCL [Suspect]
     Dates: start: 20070529, end: 20070622
  5. LOSEC                              /00661201/ [Suspect]
     Route: 048
  6. DIFENE [Suspect]
     Dates: end: 20070607
  7. INNOHEP                            /01707902/ [Suspect]
     Dates: start: 20070622, end: 20070709
  8. VELOSEF                            /00338001/ [Suspect]
     Dates: start: 20070625, end: 20070625
  9. SEPTRIN [Suspect]
  10. FUCIDIN                            /00065702/ [Concomitant]
  11. FLAGYL [Concomitant]
  12. LINEZOLID [Concomitant]
  13. SEPTRIN [Concomitant]
  14. ASPIRIN [Concomitant]
  15. VALSARTAN [Concomitant]
  16. INDAPAMIDE SR [Concomitant]
  17. BISOPROLOL FUMARATE [Concomitant]

REACTIONS (1)
  - TOXIC EPIDERMAL NECROLYSIS [None]
